FAERS Safety Report 25846458 (Version 2)
Quarter: 2025Q4

REPORT INFORMATION
  Report Type: Report from Study
  Country: EU (occurrence: EU)
  Receive Date: 20250925
  Receipt Date: 20251003
  Transmission Date: 20260117
  Serious: Yes (Death)
  Sender: PFIZER
  Company Number: EU-ROCHE-10000387854

PATIENT
  Age: 61 Year
  Sex: Male

DRUGS (32)
  1. RITUXIMAB [Suspect]
     Active Substance: RITUXIMAB
     Indication: Non-Hodgkin^s lymphoma
     Dosage: 750 MG
     Route: 065
     Dates: start: 20250808
  2. RITUXIMAB [Suspect]
     Active Substance: RITUXIMAB
     Dosage: 750 MG EVERY 21 DAYS
     Route: 042
     Dates: start: 20250828
  3. DOXORUBICIN HYDROCHLORIDE [Suspect]
     Active Substance: DOXORUBICIN HYDROCHLORIDE
     Indication: Non-Hodgkin^s lymphoma
     Dosage: 100 MG
     Route: 065
     Dates: start: 20250808
  4. DOXORUBICIN [Suspect]
     Active Substance: DOXORUBICIN
     Indication: Non-Hodgkin^s lymphoma
     Dosage: 100 MG
     Route: 065
     Dates: start: 20250808
  5. DOXORUBICIN [Suspect]
     Active Substance: DOXORUBICIN
     Dosage: 100 MG EVERY 21 DAYS
     Route: 048
     Dates: start: 20250901
  6. CYCLOPHOSPHAMIDE [Suspect]
     Active Substance: CYCLOPHOSPHAMIDE
     Indication: Non-Hodgkin^s lymphoma
     Dosage: 1500 MG
     Route: 065
     Dates: start: 20250808
  7. CYCLOPHOSPHAMIDE [Suspect]
     Active Substance: CYCLOPHOSPHAMIDE
     Dosage: 1500 MG EVERY 21 DAYS
     Route: 042
     Dates: start: 20250828
  8. POLATUZUMAB VEDOTIN [Suspect]
     Active Substance: POLATUZUMAB VEDOTIN
     Indication: Non-Hodgkin^s lymphoma
     Dosage: 145 MG
     Route: 065
     Dates: start: 20250808
  9. POLATUZUMAB VEDOTIN [Suspect]
     Active Substance: POLATUZUMAB VEDOTIN
     Dosage: 145 MG, EVERY 21 DAYS
     Route: 042
     Dates: start: 20250828
  10. PREDNISONE [Suspect]
     Active Substance: PREDNISONE
     Indication: Non-Hodgkin^s lymphoma
     Dosage: 100 MG
     Route: 065
     Dates: start: 20250808
  11. PREDNISONE [Suspect]
     Active Substance: PREDNISONE
     Dosage: 100 MG EVERY 21 DAYS
     Route: 042
     Dates: start: 20250828
  12. PIPERACILLIN [Concomitant]
     Active Substance: PIPERACILLIN
     Dosage: DOSE: 4, SOLUTION
     Dates: start: 20250902, end: 20250903
  13. PIPERACILLIN [Concomitant]
     Active Substance: PIPERACILLIN
     Dosage: DOSE: 4, SOLUTION
     Dates: start: 20250904, end: 20250910
  14. TAZOBACTAM [Concomitant]
     Active Substance: TAZOBACTAM
     Dosage: 2.5 G, 1X/DAY (SUSPENSION)
     Dates: start: 20250902, end: 20250903
  15. TAZOBACTAM [Concomitant]
     Active Substance: TAZOBACTAM
     Dosage: 2 G, 1X/DAY (SUSPENSION)
     Dates: start: 20250904, end: 20250910
  16. DAPTOMYCIN [Concomitant]
     Active Substance: DAPTOMYCIN
     Dosage: 700 MG, 1X/DAY (SUSPENSION)
     Dates: start: 20250905, end: 20250911
  17. ACETAMINOPHEN [Concomitant]
     Active Substance: ACETAMINOPHEN
     Dosage: 1 G
     Dates: start: 20250809, end: 20250829
  18. ACETAMINOPHEN [Concomitant]
     Active Substance: ACETAMINOPHEN
     Dosage: 1 G, 1X/DAY, SOLUTION
     Dates: start: 20250902, end: 20250908
  19. RAMIPRIL [Concomitant]
     Active Substance: RAMIPRIL
     Dosage: 5 MG
     Dates: start: 2019, end: 20250911
  20. BISOPROLOL FUMARATE [Concomitant]
     Active Substance: BISOPROLOL FUMARATE
     Dosage: 2.5 MG
     Dates: start: 2019, end: 20250911
  21. LANSOPRAZOLE [Concomitant]
     Active Substance: LANSOPRAZOLE
     Dosage: 30 MG
     Dates: start: 20250801, end: 20250806
  22. ATORVASTATIN [Concomitant]
     Active Substance: ATORVASTATIN
     Dosage: 20 MG
     Dates: start: 20250731, end: 20250911
  23. FUROSEMIDE [Concomitant]
     Active Substance: FUROSEMIDE
     Dosage: 25 MG
     Dates: start: 20250801, end: 20250806
  24. FUROSEMIDE [Concomitant]
     Active Substance: FUROSEMIDE
     Dosage: 20 MG
     Dates: start: 20250807, end: 20250810
  25. FUROSEMIDE [Concomitant]
     Active Substance: FUROSEMIDE
     Dosage: 25 MG
     Dates: start: 20250811, end: 20250911
  26. ASPIRIN [Concomitant]
     Active Substance: ASPIRIN
     Dosage: 100 MG
     Dates: start: 20250801, end: 20250807
  27. LAMIVUDINE [Concomitant]
     Active Substance: LAMIVUDINE
     Dosage: 100 MG
     Dates: start: 20250806, end: 20250911
  28. OMEPRAZOLE [Concomitant]
     Active Substance: OMEPRAZOLE
     Dosage: 40 MG
     Dates: start: 20250807, end: 20250813
  29. ONDANSETRON [Concomitant]
     Active Substance: ONDANSETRON
     Dosage: 8 MG
     Dates: start: 20250807, end: 20250811
  30. CHLORPHENIRAMINE MALEATE [Concomitant]
     Active Substance: CHLORPHENIRAMINE MALEATE
     Dosage: 10 MG
     Dates: start: 20250809, end: 20250829
  31. SULFAMETHOXAZOLE [Concomitant]
     Active Substance: SULFAMETHOXAZOLE
     Dosage: 800 MG
     Dates: start: 20250814, end: 20250901
  32. TRIMETHOPRIM [Concomitant]
     Active Substance: TRIMETHOPRIM
     Dosage: 160 MG
     Dates: start: 20250814, end: 20250901

REACTIONS (1)
  - Sepsis [Fatal]

NARRATIVE: CASE EVENT DATE: 20250902
